FAERS Safety Report 6058686-4 (Version None)
Quarter: 2009Q1

REPORT INFORMATION
  Report Type: 
  Country: None (occurrence: None)
  Receive Date: 20090130
  Receipt Date: 20090121
  Transmission Date: 20090719
  Serious: Yes (Death, Hospitalization)
  Sender: FDA-Public Use
  Company Number: US-BAYER-200910978NA

PATIENT
  Age: 59 Year
  Sex: Female
  Weight: 61 kg

DRUGS (2)
  1. SORAFENIB OR PLACEBO [Suspect]
     Indication: BREAST CANCER METASTATIC
     Dosage: TOTAL DAILY DOSE: 800 MG  UNIT DOSE: 200 MG
     Route: 048
     Dates: start: 20080926, end: 20090106
  2. GEMZAR [Suspect]
     Indication: BREAST CANCER METASTATIC
     Dosage: AS USED: 1000 MG/M2
     Route: 042
     Dates: start: 20080926, end: 20090106

REACTIONS (2)
  - ASTHENIA [None]
  - PNEUMONIA [None]
